FAERS Safety Report 19904201 (Version 1)
Quarter: 2021Q4

REPORT INFORMATION
  Report Type: Spontaneous
  Country: CA (occurrence: CA)
  Receive Date: 20211001
  Receipt Date: 20211001
  Transmission Date: 20220303
  Serious: Yes (Hospitalization)
  Sender: FDA-Public Use
  Company Number: CA-AUROBINDO-AUR-APL-2021-040405

PATIENT
  Sex: Female

DRUGS (4)
  1. METRONIDAZOLE [Suspect]
     Active Substance: METRONIDAZOLE
     Indication: Neoplasm
     Dosage: 1500 MG/M2
     Route: 048
  2. METRONIDAZOLE [Suspect]
     Active Substance: METRONIDAZOLE
     Dosage: 500 MG/M2
     Route: 054
  3. ETOPOSIDE PHOSPHATE [Suspect]
     Active Substance: ETOPOSIDE PHOSPHATE
     Indication: Neoplasm
     Dosage: 100 MG/M2, ONCE A DAY
     Route: 042
  4. KETOCONAZOLE [Suspect]
     Active Substance: KETOCONAZOLE
     Indication: Neoplasm
     Dosage: 700 MG/M2, ONCE A DAY
     Route: 048

REACTIONS (3)
  - Asthenia [Recovered/Resolved]
  - Bedridden [Recovered/Resolved]
  - Musculoskeletal stiffness [Recovered/Resolved]
